FAERS Safety Report 13878813 (Version 2)
Quarter: 2017Q4

REPORT INFORMATION
  Report Type: Spontaneous
  Country: EG (occurrence: EG)
  Receive Date: 20170817
  Receipt Date: 20171005
  Transmission Date: 20180320
  Serious: Yes (Hospitalization)
  Sender: FDA-Public Use
  Company Number: EG-PFIZER INC-2017352800

PATIENT
  Age: 60 Year
  Sex: Female
  Weight: 100 kg

DRUGS (3)
  1. FARMORUBICIN [Suspect]
     Active Substance: EPIRUBICIN HYDROCHLORIDE
     Indication: GASTRIC CANCER
     Dosage: 100 MG, CYCLIC, IN DAY1, ONCE EVERY 3 WEEKS
     Route: 041
     Dates: start: 20170516, end: 201706
  2. UTORAL [Suspect]
     Active Substance: FLUOROURACIL
     Indication: GASTRIC CANCER
     Dosage: 4000 MG, CYCLIC, FOR 5 CONSECUTIVE DAYS EACH CYCLE
     Route: 041
     Dates: start: 20170516, end: 201706
  3. CISPLATINE MYLAN [Suspect]
     Active Substance: CISPLATIN
     Indication: GASTRIC CANCER
     Dosage: 120 MG, CYCLIC, IN DAY 1, ONCE EVERY 3 WEEKS
     Route: 041
     Dates: start: 20170516, end: 201706

REACTIONS (2)
  - Blood creatinine increased [Unknown]
  - Anuria [Unknown]

NARRATIVE: CASE EVENT DATE: 20170610
